FAERS Safety Report 9171736 (Version 1)
Quarter: 2013Q1

REPORT INFORMATION
  Report Type: Spontaneous
  Country: ES (occurrence: ES)
  Receive Date: 20130319
  Receipt Date: 20130319
  Transmission Date: 20140127
  Serious: Yes (Hospitalization)
  Sender: FDA-Public Use
  Company Number: ES-BRISTOL-MYERS SQUIBB COMPANY-17460874

PATIENT
  Age: 55 Year
  Sex: Male

DRUGS (7)
  1. HYDREA [Suspect]
     Indication: MYELODYSPLASTIC SYNDROME
     Route: 048
     Dates: start: 20100415, end: 20120828
  2. OMEPRAZOLE [Suspect]
     Indication: PROPHYLAXIS
     Route: 048
     Dates: start: 20120814, end: 20120828
  3. ALLOPURINOL [Suspect]
     Indication: GOUT
     Route: 048
     Dates: start: 20120814, end: 20120828
  4. INDOMETACIN [Suspect]
     Indication: PSORIATIC ARTHROPATHY
     Route: 048
     Dates: start: 20120814, end: 20120828
  5. DEPAKINE [Concomitant]
     Indication: EPILEPSY
     Route: 048
     Dates: start: 1965
  6. EPANUTIN [Concomitant]
     Indication: EPILEPSY
     Dosage: CAPSULES
     Route: 048
     Dates: start: 1965
  7. GARDENAL [Concomitant]
     Indication: EPILEPSY
     Route: 048
     Dates: start: 1965, end: 20120828

REACTIONS (1)
  - Rash pustular [Recovered/Resolved]
